FAERS Safety Report 13823259 (Version 2)
Quarter: 2017Q3

REPORT INFORMATION
  Report Type: Spontaneous
  Country: US (occurrence: US)
  Receive Date: 20170802
  Receipt Date: 20170914
  Transmission Date: 20171127
  Serious: No
  Sender: FDA-Public Use
  Company Number: US-ASTRAZENECA-2017SE74622

PATIENT
  Sex: Female
  Weight: 65.8 kg

DRUGS (1)
  1. SYMBICORT [Suspect]
     Active Substance: BUDESONIDE\FORMOTEROL FUMARATE DIHYDRATE
     Indication: CHRONIC OBSTRUCTIVE PULMONARY DISEASE
     Dosage: 160/4.5 MCG 2 PUFFS TWICE A DAY
     Route: 055
     Dates: start: 20170629

REACTIONS (6)
  - Blood pressure increased [Unknown]
  - Device malfunction [Unknown]
  - Therapy cessation [Unknown]
  - Product storage error [Not Recovered/Not Resolved]
  - Off label use of device [Not Recovered/Not Resolved]
  - Drug dose omission [Unknown]
